FAERS Safety Report 5066601-5 (Version None)
Quarter: 2006Q3

REPORT INFORMATION
  Report Type: 
  Country: None (occurrence: None)
  Receive Date: 20060801
  Receipt Date: 20060221
  Transmission Date: 20061208
  Serious: Yes (Other)
  Sender: FDA-Public Use
  Company Number: NL-AMGEN-UK169808

PATIENT
  Sex: Female

DRUGS (19)
  1. ARANESP [Suspect]
     Indication: RENAL FAILURE CHRONIC
     Route: 058
     Dates: start: 20021201, end: 20050801
  2. EPREX [Suspect]
     Route: 042
     Dates: start: 20050801, end: 20060215
  3. PANTOZOL [Concomitant]
     Route: 048
     Dates: start: 20040127
  4. LIPITOR [Concomitant]
     Route: 048
     Dates: start: 20030926
  5. ASCORBIC ACID [Concomitant]
     Route: 048
     Dates: start: 20030617
  6. FOLIC ACID [Concomitant]
     Route: 048
     Dates: start: 20030617
  7. ASCAL [Concomitant]
     Route: 048
     Dates: start: 20050830
  8. FRAXIPARINE [Concomitant]
     Route: 042
     Dates: start: 20050705
  9. VENOFER [Concomitant]
     Route: 042
     Dates: start: 20050701
  10. MUPIROCIN [Concomitant]
     Route: 065
     Dates: start: 20050608
  11. CALCIUM ACETATE [Concomitant]
     Route: 048
     Dates: start: 20050712
  12. PERSANTIN [Concomitant]
     Route: 048
     Dates: start: 20031101
  13. VITAMIN B COMPLEX CAP [Concomitant]
     Route: 048
     Dates: start: 20030617
  14. FUROSEMIDE [Concomitant]
     Route: 048
     Dates: start: 20040702
  15. DIPYRIDAMOLE [Concomitant]
     Route: 065
  16. HEPARIN [Concomitant]
     Route: 065
  17. NEORECORMON [Concomitant]
     Route: 065
     Dates: start: 20060215, end: 20060515
  18. PREDNISONE [Concomitant]
     Route: 048
     Dates: start: 20051213
  19. PREDNISOLONE [Concomitant]
     Route: 065

REACTIONS (2)
  - APLASIA PURE RED CELL [None]
  - THERAPEUTIC RESPONSE DECREASED [None]
